FAERS Safety Report 18208060 (Version 2)
Quarter: 2020Q3

REPORT INFORMATION
  Report Type: Spontaneous
  Country: US (occurrence: US)
  Receive Date: 20200828
  Receipt Date: 20200831
  Transmission Date: 20201103
  Serious: No
  Sender: FDA-Public Use
  Company Number: US-PFIZER INC-2020333649

PATIENT
  Age: 63 Year
  Sex: Female
  Weight: 73.48 kg

DRUGS (2)
  1. PROTONIX [Suspect]
     Active Substance: PANTOPRAZOLE SODIUM
     Indication: GASTROOESOPHAGEAL CANCER
  2. PROTONIX [Suspect]
     Active Substance: PANTOPRAZOLE SODIUM
     Indication: OESOPHAGEAL ULCER
     Dosage: 40 MG, 2X/DAY
     Route: 050
     Dates: start: 202007

REACTIONS (3)
  - Off label use [Not Recovered/Not Resolved]
  - Product use issue [Not Recovered/Not Resolved]
  - Treatment noncompliance [Not Recovered/Not Resolved]

NARRATIVE: CASE EVENT DATE: 202007
